FAERS Safety Report 7757436-0 (Version None)
Quarter: 2011Q3

REPORT INFORMATION
  Report Type: 
  Country: None (occurrence: None)
  Receive Date: 20110916
  Receipt Date: 20110825
  Transmission Date: 20111222
  Serious: Yes (Death)
  Sender: FDA-Public Use
  Company Number: FR-CEPHALON-2011004516

PATIENT
  Sex: Female

DRUGS (5)
  1. DURAGESIC-100 [Concomitant]
     Dates: start: 20100402
  2. VELCADE [Suspect]
     Indication: MULTIPLE MYELOMA
     Route: 042
     Dates: start: 20110808, end: 20110808
  3. LYTOS [Concomitant]
     Dates: start: 20110307
  4. TREANDA [Suspect]
     Indication: MULTIPLE MYELOMA
     Route: 041
     Dates: start: 20110808, end: 20110808
  5. DEXAMETHASONE [Suspect]
     Indication: MULTIPLE MYELOMA
     Route: 048
     Dates: start: 20110808, end: 20110808

REACTIONS (2)
  - DIARRHOEA [None]
  - DEHYDRATION [None]
